FAERS Safety Report 9760375 (Version 2)
Quarter: 2013Q4

REPORT INFORMATION
  Report Type: Spontaneous
  Country: US (occurrence: US)
  Receive Date: 20131216
  Receipt Date: 20131216
  Transmission Date: 20140711
  Serious: Yes (Hospitalization)
  Sender: FDA-Public Use
  Company Number: US-GILEAD-2010-0029368

PATIENT
  Age: 60 Year
  Sex: Male

DRUGS (10)
  1. LETAIRIS [Suspect]
     Indication: PULMONARY ARTERIAL HYPERTENSION
     Route: 048
     Dates: start: 20071004
  2. ADCIRCA [Concomitant]
  3. FUROSEMIDE [Concomitant]
  4. SPIRONOLACTONE [Concomitant]
  5. METOLAZONE [Concomitant]
  6. METHADONE HCL [Concomitant]
  7. MORPHINE SULFATE [Concomitant]
  8. OMEPRAZOLE [Concomitant]
  9. POTASSIUM [Concomitant]
  10. PREDNISONE [Concomitant]

REACTIONS (2)
  - Dyspnoea [Recovering/Resolving]
  - Fluid retention [Recovering/Resolving]
